FAERS Safety Report 7554072-6 (Version None)
Quarter: 2011Q2

REPORT INFORMATION
  Report Type: 
  Country: None (occurrence: None)
  Receive Date: 20110610
  Receipt Date: 20110601
  Transmission Date: 20111010
  Serious: Yes (Other)
  Sender: FDA-Public Use
  Company Number: 1000021358

PATIENT
  Age: 84 Year
  Sex: Male

DRUGS (2)
  1. TIKOSIN [Concomitant]
  2. NAMENDA [Suspect]

REACTIONS (2)
  - VENTRICULAR TACHYCARDIA [None]
  - ELECTROCARDIOGRAM QT PROLONGED [None]
